FAERS Safety Report 18143328 (Version 1)
Quarter: 2020Q3

REPORT INFORMATION
  Report Type: Spontaneous
  Country: US (occurrence: US)
  Receive Date: 20200812
  Receipt Date: 20200812
  Transmission Date: 20201103
  Serious: Yes (Death, Other)
  Sender: FDA-Public Use
  Company Number: US-GILEAD-2020-0489776

PATIENT
  Age: 47 Year
  Sex: Male
  Weight: 80 kg

DRUGS (2)
  1. REMDESIVIR. [Suspect]
     Active Substance: REMDESIVIR
     Indication: COVID-19
     Dosage: 100 MG, QD
     Route: 042
     Dates: start: 20200707, end: 20200711
  2. DEXAMETHASONE. [Concomitant]
     Active Substance: DEXAMETHASONE

REACTIONS (1)
  - Death [Fatal]

NARRATIVE: CASE EVENT DATE: 20200801
